FAERS Safety Report 7554553-5 (Version None)
Quarter: 2011Q2

REPORT INFORMATION
  Report Type: 
  Country: None (occurrence: None)
  Receive Date: 20110617
  Receipt Date: 20110611
  Transmission Date: 20111010
  Serious: Yes (Hospitalization)
  Sender: FDA-Public Use
  Company Number: FR-ABBOTT-11P-056-0731983-00

PATIENT
  Age: 68 Year
  Sex: Female

DRUGS (1)
  1. ADALIMUMAB [Suspect]
     Indication: PRODUCT USED FOR UNKNOWN INDICATION
     Dates: start: 20070101

REACTIONS (3)
  - TUBERCULOSIS [None]
  - CYTOLYTIC HEPATITIS [None]
  - IMMUNE RECONSTITUTION SYNDROME [None]
